FAERS Safety Report 9147635 (Version 1)
Quarter: 2013Q1

REPORT INFORMATION
  Report Type: Report from Study
  Country: DK (occurrence: DE)
  Receive Date: 20130307
  Receipt Date: 20130307
  Transmission Date: 20140127
  Serious: Yes (Hospitalization, Other)
  Sender: FDA-Public Use
  Company Number: DE-FRI-1000043122

PATIENT
  Sex: Male

DRUGS (2)
  1. CITALOPRAM [Suspect]
     Dosage: 20 MG
     Route: 048
     Dates: start: 20110801, end: 20121008
  2. CITALOPRAM [Suspect]
     Dosage: UNKNOWN DOSAGE
     Route: 048

REACTIONS (9)
  - Toxicity to various agents [Recovered/Resolved]
  - White blood cell count increased [Unknown]
  - Alanine aminotransferase increased [Unknown]
  - Gamma-glutamyltransferase increased [Unknown]
  - Blood lactate dehydrogenase increased [Unknown]
  - Suicide attempt [Recovered/Resolved]
  - Alopecia areata [Unknown]
  - Alopecia [Unknown]
  - Intentional overdose [Recovered/Resolved]
